FAERS Safety Report 6314391-8 (Version None)
Quarter: 2009Q3

REPORT INFORMATION
  Report Type: 
  Country: None (occurrence: None)
  Receive Date: 20090819
  Receipt Date: 20090814
  Transmission Date: 20100115
  Serious: Yes (Other)
  Sender: FDA-Public Use
  Company Number: AU-B.I. PHARMACEUTICALS,INC./RIDGEFIELD-2009-AU-00433AU

PATIENT
  Sex: Female

DRUGS (1)
  1. SIFROL [Suspect]
     Indication: PARKINSON'S DISEASE

REACTIONS (1)
  - STEVENS-JOHNSON SYNDROME [None]
